FAERS Safety Report 9215767 (Version 1)
Quarter: 2013Q2

REPORT INFORMATION
  Report Type: Spontaneous
  Country: US (occurrence: None)
  Receive Date: 20130404
  Receipt Date: 20130404
  Transmission Date: 20140414
  Serious: Yes (Death)
  Sender: FDA-Public Use
  Company Number: SYM-2013-02301

PATIENT
  Sex: 0

DRUGS (2)
  1. FLUOROURACIL (FLUOROURACIL) [Suspect]
     Indication: GASTROINTESTINAL CARCINOMA
  2. CISPLATIN [Suspect]
     Indication: GASTROINTESTINAL CARCINOMA

REACTIONS (1)
  - Cardiac failure acute [None]
